FAERS Safety Report 9197927 (Version 2)
Quarter: 2013Q2

REPORT INFORMATION
  Report Type: Spontaneous
  Country: NL (occurrence: NL)
  Receive Date: 20130328
  Receipt Date: 20130421
  Transmission Date: 20140414
  Serious: Yes (Death, Hospitalization)
  Sender: FDA-Public Use
  Company Number: NL-B.I. PHARMACEUTICALS,INC./RIDGEFIELD-2013-NL-00159NL

PATIENT
  Age: 59 Year
  Sex: Male
  Weight: 78 kg

DRUGS (3)
  1. OMNIC OCAS [Suspect]
     Dosage: 0.4 MG
     Dates: start: 20120101
  2. MICARDIS 20 MG [Suspect]
     Indication: HYPERTENSION
     Dosage: 20 MG
     Dates: start: 20120101
  3. CRESTOR [Suspect]
     Indication: CARDIOVASCULAR DISORDER
     Dosage: 2.5 MG
     Dates: start: 20120101

REACTIONS (3)
  - Procedural complication [Fatal]
  - Aortic dissection [Fatal]
  - Peripheral artery thrombosis [Fatal]
